FAERS Safety Report 9801978 (Version 1)
Quarter: 2014Q1

REPORT INFORMATION
  Report Type: Spontaneous
  Country: IT (occurrence: IT)
  Receive Date: 20140107
  Receipt Date: 20140107
  Transmission Date: 20141002
  Serious: Yes (Other)
  Sender: FDA-Public Use
  Company Number: IT-ELI_LILLY_AND_COMPANY-IT201312009128

PATIENT
  Age: 30 Year
  Sex: Female
  Weight: 65 kg

DRUGS (2)
  1. CYMBALTA [Suspect]
     Indication: DEPRESSION
     Dosage: 60 MG, QD
     Route: 048
     Dates: start: 20120405
  2. TAVOR [Concomitant]
     Indication: DEPRESSION
     Dosage: 1 MG, UNK
     Route: 048

REACTIONS (6)
  - Anaemia [Unknown]
  - Metrorrhagia [Unknown]
  - Asthenia [Unknown]
  - Vertigo [Unknown]
  - Nausea [Unknown]
  - Palpitations [Unknown]
